FAERS Safety Report 24958861 (Version 1)
Quarter: 2025Q1

REPORT INFORMATION
  Report Type: Spontaneous
  Country: CO (occurrence: CO)
  Receive Date: 20250212
  Receipt Date: 20250212
  Transmission Date: 20250409
  Serious: Yes (Hospitalization)
  Sender: CHIESI
  Company Number: CO-CHIESI-2025CHF00797

PATIENT
  Age: 41 Year
  Sex: Female

DRUGS (1)
  1. FILSUVEZ [Suspect]
     Active Substance: BIRCH TRITERPENES
     Indication: Epidermolysis bullosa
     Route: 061
     Dates: start: 20221112, end: 20250127

REACTIONS (1)
  - Appendicitis [Unknown]

NARRATIVE: CASE EVENT DATE: 20250201
